FAERS Safety Report 11995738 (Version 2)
Quarter: 2016Q1

REPORT INFORMATION
  Report Type: Spontaneous
  Country: US (occurrence: US)
  Receive Date: 20160203
  Receipt Date: 20160212
  Transmission Date: 20160526
  Serious: No
  Sender: FDA-Public Use
  Company Number: US-PFIZER INC-2016060274

PATIENT
  Age: 54 Year
  Sex: Female

DRUGS (2)
  1. LYRICA [Suspect]
     Active Substance: PREGABALIN
     Dosage: HER SHE WAS TRYING TO STRETCH THEM OUT TO 75MG,PRESCRIPTION FOR LYRICA WAS 200 MG THREE TIMES A DAY.
  2. LYRICA [Suspect]
     Active Substance: PREGABALIN
     Dosage: TRYING TO STRETCH THEM OUT 75 MG

REACTIONS (2)
  - Drug dose omission [Unknown]
  - Pain [Unknown]
